FAERS Safety Report 13343194 (Version 2)
Quarter: 2017Q2

REPORT INFORMATION
  Report Type: Spontaneous
  Country: US (occurrence: US)
  Receive Date: 20170316
  Receipt Date: 20170606
  Transmission Date: 20170830
  Serious: No
  Sender: FDA-Public Use
  Company Number: US-ALLERGAN-1705343US

PATIENT
  Age: 70 Year
  Sex: Male
  Weight: 136.5 kg

DRUGS (1)
  1. AVYCAZ [Suspect]
     Active Substance: AVIBACTAM SODIUM\CEFTAZIDIME
     Indication: CELLULITIS
     Dosage: UNK, QD
     Route: 065

REACTIONS (4)
  - Confusional state [Recovered/Resolved]
  - Off label use [Unknown]
  - Pallor [Recovering/Resolving]
  - Mental status changes [Recovered/Resolved]
